FAERS Safety Report 13066874 (Version 2)
Quarter: 2017Q1

REPORT INFORMATION
  Report Type: Spontaneous
  Country: US (occurrence: US)
  Receive Date: 20161227
  Receipt Date: 20170202
  Transmission Date: 20170428
  Serious: Yes (Hospitalization)
  Sender: FDA-Public Use
  Company Number: US-ROCHE-1867995

PATIENT
  Sex: Female

DRUGS (1)
  1. TECENTRIQ [Suspect]
     Active Substance: ATEZOLIZUMAB
     Indication: NON-SMALL CELL LUNG CANCER
     Dosage: MOST RECENT DOSE PRIOR TO AE ONSET: 29/NOV/2016
     Route: 042

REACTIONS (3)
  - Bacteraemia [Unknown]
  - Cytomegalovirus infection [Unknown]
  - Pyrexia [Unknown]
